FAERS Safety Report 8129399-X (Version None)
Quarter: 2012Q1

REPORT INFORMATION
  Report Type: 
  Country: None (occurrence: None)
  Receive Date: 20120103
  Receipt Date: 20110902
  Transmission Date: 20120608
  Serious: No
  Sender: FDA-Public Use
  Company Number: AE-2011-001282

PATIENT
  Age: 56 Year
  Sex: Female
  Weight: 68.4932 kg

DRUGS (7)
  1. PEGASYS [Concomitant]
  2. RIBAVIRIN [Concomitant]
  3. VITAMIN A TO Z (VITAMINS) [Concomitant]
  4. VITAMIN D [Concomitant]
  5. CALCIUM CARBONATE [Concomitant]
  6. INCIVEK [Suspect]
     Dosage: 2250 MG (750 MG, 3 IN 1 D), ORAL
     Route: 048
     Dates: start: 20110901
  7. BUPROPION HCL [Concomitant]

REACTIONS (2)
  - HOT FLUSH [None]
  - CHILLS [None]
